FAERS Safety Report 7124820-8 (Version None)
Quarter: 2010Q4

REPORT INFORMATION
  Report Type: 
  Country: None (occurrence: None)
  Receive Date: 20101123
  Receipt Date: 20101123
  Transmission Date: 20110411
  Serious: Yes (Hospitalization)
  Sender: FDA-Public Use
  Company Number: None

PATIENT
  Age: 15 Year
  Sex: Male
  Weight: 79.3795 kg

DRUGS (1)
  1. TRAZODONE HCL [Suspect]
     Indication: BIPOLAR DISORDER
     Dosage: ONE TAB AT BEDTIME EVERY PM PO
     Route: 048
     Dates: start: 20100215, end: 20100515

REACTIONS (5)
  - CONFUSIONAL STATE [None]
  - DEPRESSED LEVEL OF CONSCIOUSNESS [None]
  - DISORIENTATION [None]
  - SOMNAMBULISM [None]
  - SOMNOLENCE [None]
